FAERS Safety Report 12942469 (Version 3)
Quarter: 2017Q1

REPORT INFORMATION
  Report Type: Spontaneous
  Country: US (occurrence: US)
  Receive Date: 20161115
  Receipt Date: 20170221
  Transmission Date: 20170428
  Serious: Yes (Hospitalization, Disabling, Other)
  Sender: FDA-Public Use
  Company Number: US-JNJFOC-20161019957

PATIENT
  Age: 21 Year
  Sex: Female
  Weight: 87.09 kg

DRUGS (10)
  1. INVEGA TRINZA [Suspect]
     Active Substance: PALIPERIDONE PALMITATE
     Indication: MOOD SWINGS
     Dosage: EVERY 2 1/2 MONTHS DELTOID SINCE 9 MONTHS
     Route: 030
     Dates: start: 20151115, end: 20160830
  2. INVEGA TRINZA [Suspect]
     Active Substance: PALIPERIDONE PALMITATE
     Indication: PSYCHOTIC DISORDER
     Dosage: EVERY 2 1/2 MONTHS DELTOID SINCE 9 MONTHS
     Route: 030
     Dates: start: 20151115, end: 20160830
  3. GABAPENTIN. [Concomitant]
     Active Substance: GABAPENTIN
     Indication: ANXIETY
     Route: 065
     Dates: start: 20160705, end: 20160906
  4. INVEGA TRINZA [Suspect]
     Active Substance: PALIPERIDONE PALMITATE
     Indication: SCHIZOPHRENIA
     Dosage: EVERY 2 1/2 MONTHS DELTOID SINCE 9 MONTHS
     Route: 030
     Dates: start: 20151115, end: 20160830
  5. PRAZOSIN [Concomitant]
     Active Substance: PRAZOSIN
     Indication: NIGHTMARE
     Route: 048
     Dates: start: 20160705
  6. CLONAZEPAM. [Concomitant]
     Active Substance: CLONAZEPAM
     Indication: ANXIETY
     Dosage: PRN
     Route: 048
     Dates: start: 20160324, end: 20160830
  7. HYDROXYZINE [Concomitant]
     Active Substance: HYDROXYZINE HYDROCHLORIDE
     Indication: ANXIETY
     Dosage: PRN
     Route: 048
  8. PRAMIPEXOLE. [Concomitant]
     Active Substance: PRAMIPEXOLE
     Indication: RESTLESS LEGS SYNDROME
     Dosage: 0.75 (UNSPECIFIED UNITS)
     Route: 048
  9. SERTRALINE [Concomitant]
     Active Substance: SERTRALINE HYDROCHLORIDE
     Indication: ANXIETY
     Route: 048
  10. SERTRALINE [Concomitant]
     Active Substance: SERTRALINE HYDROCHLORIDE
     Indication: DEPRESSION
     Route: 048

REACTIONS (4)
  - Off label use [Unknown]
  - Inappropriate schedule of drug administration [Unknown]
  - Schizophrenia [Recovered/Resolved with Sequelae]
  - Wrong technique in product usage process [Unknown]

NARRATIVE: CASE EVENT DATE: 20151115
